FAERS Safety Report 7575188-4 (Version None)
Quarter: 2011Q2

REPORT INFORMATION
  Report Type: 
  Country: None (occurrence: None)
  Receive Date: 20110627
  Receipt Date: 20110615
  Transmission Date: 20111010
  Serious: Yes (Hospitalization)
  Sender: FDA-Public Use
  Company Number: FR-UCBSA-021245

PATIENT
  Sex: Female

DRUGS (12)
  1. VIMPAT [Suspect]
     Route: 048
     Dates: start: 20100705, end: 20100901
  2. URBANYL [Concomitant]
     Dosage: AS USED: A HALF UNIT
     Dates: start: 20100713, end: 20100901
  3. SODIUM BICARBONATE [Concomitant]
     Dosage: 3 UNITS PER DAY
  4. VIMPAT [Suspect]
     Dosage: REDUCED FROM PREVIOUS DOSE OF 50 MG TWICE DAILY
     Route: 048
     Dates: start: 20100901, end: 20100921
  5. LAMICTAL [Concomitant]
  6. AMLODIPINE [Concomitant]
  7. GAVISCON [Concomitant]
     Dosage: 1 UNIT
     Route: 048
  8. VIMPAT [Suspect]
     Indication: EPILEPSY
     Route: 048
     Dates: start: 20100701, end: 20100704
  9. LAMICTAL [Concomitant]
     Route: 048
  10. LAMICTAL [Concomitant]
  11. SODIUM ALGINATE [Concomitant]
  12. OMEPRAZOLE [Concomitant]
     Dosage: 1 UNIT  MID
     Route: 048

REACTIONS (13)
  - APATHY [None]
  - DYSSTASIA [None]
  - VOMITING [None]
  - BEDRIDDEN [None]
  - DELIRIUM [None]
  - APHAGIA [None]
  - DISORIENTATION [None]
  - VERTIGO [None]
  - TREMOR [None]
  - PERSECUTORY DELUSION [None]
  - MENTAL STATUS CHANGES [None]
  - CONFUSIONAL STATE [None]
  - NAUSEA [None]
